FAERS Safety Report 14332086 (Version 1)
Quarter: 2017Q4

REPORT INFORMATION
  Report Type: Spontaneous
  Country: US (occurrence: US)
  Receive Date: 20171227
  Receipt Date: 20171227
  Transmission Date: 20180321
  Serious: Yes (Disabling)
  Sender: FDA-Public Use
  Company Number: None

PATIENT
  Age: 66 Year
  Sex: Female
  Weight: 70.31 kg

DRUGS (6)
  1. ALBUTEROL. [Concomitant]
     Active Substance: ALBUTEROL
  2. DIAZEPAM TABLETS, 5MG [Suspect]
     Active Substance: DIAZEPAM
     Indication: PAIN
     Dosage: 1-2 TABLETS PRN MOUTH
     Route: 048
     Dates: start: 201608, end: 201711
  3. PREDNSONE [Concomitant]
  4. ALBUTEROL INHALERS [Concomitant]
  5. RAVATIO [Concomitant]
  6. VITAMINES [Concomitant]

REACTIONS (14)
  - Vision blurred [None]
  - Gait inability [None]
  - Anaphylactic reaction [None]
  - Therapy change [None]
  - Surgical failure [None]
  - Device issue [None]
  - Apparent death [None]
  - Myalgia [None]
  - Urinary incontinence [None]
  - Drug dependence [None]
  - Quality of life decreased [None]
  - Respiratory depression [None]
  - Gait disturbance [None]
  - Sleep disorder [None]

NARRATIVE: CASE EVENT DATE: 201711
